FAERS Safety Report 13843623 (Version 2)
Quarter: 2017Q3

REPORT INFORMATION
  Report Type: Spontaneous
  Country: US (occurrence: US)
  Receive Date: 20170808
  Receipt Date: 20170811
  Transmission Date: 20171127
  Serious: Yes (Other)
  Sender: FDA-Public Use
  Company Number: US-PFIZER INC-2017338306

PATIENT
  Age: 70 Year
  Sex: Female
  Weight: 97 kg

DRUGS (1)
  1. AROMASIN [Suspect]
     Active Substance: EXEMESTANE
     Indication: BREAST CANCER
     Dosage: 0.25 MG, 1X/DAY
     Route: 048

REACTIONS (4)
  - Dysgraphia [Not Recovered/Not Resolved]
  - Memory impairment [Not Recovered/Not Resolved]
  - Underdose [Unknown]
  - Thrombosis [Recovered/Resolved with Sequelae]
